FAERS Safety Report 8388334-X (Version None)
Quarter: 2012Q2

REPORT INFORMATION
  Report Type: 
  Country: None (occurrence: None)
  Receive Date: 20120525
  Receipt Date: 20120516
  Transmission Date: 20120825
  Serious: Yes (Hospitalization)
  Sender: FDA-Public Use
  Company Number: FR-ASTRAZENECA-2012SE31536

PATIENT
  Age: 23278 Day
  Sex: Male
  Weight: 115 kg

DRUGS (3)
  1. ATACAND [Suspect]
     Dosage: DAILY FREQUENCY
     Route: 048
     Dates: start: 20070101, end: 20111117
  2. PRAZOSIN HCL [Concomitant]
     Route: 048
  3. CRESTOR [Concomitant]
     Route: 048

REACTIONS (2)
  - ANGIOEDEMA [None]
  - PALATAL OEDEMA [None]
